FAERS Safety Report 8249462-2 (Version None)
Quarter: 2012Q1

REPORT INFORMATION
  Report Type: 
  Country: None (occurrence: None)
  Receive Date: 20120327
  Receipt Date: 20120308
  Transmission Date: 20120608
  Serious: Yes (Other)
  Sender: FDA-Public Use
  Company Number: 2012PROUSA01167

PATIENT
  Age: 71 Year
  Sex: Male

DRUGS (5)
  1. PROVENGE [Suspect]
     Indication: PROSTATE CANCER METASTATIC
     Dosage: 250 ML, SINGLE, INTRAVENOUS
     Route: 042
     Dates: start: 20111208, end: 20111208
  2. PROVENGE [Suspect]
     Dates: start: 20111215, end: 20111215
  3. PROVENGE [Suspect]
  4. PROVENGE [Suspect]
     Indication: PROSTATE CANCER
     Dates: start: 20111230, end: 20111230
  5. PROVENGE [Suspect]

REACTIONS (1)
  - MYOSITIS [None]
